FAERS Safety Report 24531009 (Version 3)
Quarter: 2025Q1

REPORT INFORMATION
  Report Type: Spontaneous
  Country: ES (occurrence: ES)
  Receive Date: 20241021
  Receipt Date: 20250129
  Transmission Date: 20250408
  Serious: Yes (Life-Threatening, Other)
  Sender: PIRAMAL
  Company Number: ES-PIRAMAL CRITICAL CARE LIMITED-2024-PPL-000781

PATIENT

DRUGS (1)
  1. SEVOFLURANE [Suspect]
     Active Substance: SEVOFLURANE
     Indication: Sedation
     Dates: start: 20231226, end: 20231229

REACTIONS (4)
  - Acute kidney injury [Recovered/Resolved]
  - Hypernatraemia [Recovered/Resolved]
  - Polyuria [Recovered/Resolved]
  - Product use in unapproved indication [Unknown]

NARRATIVE: CASE EVENT DATE: 20231227
